FAERS Safety Report 24127374 (Version 1)
Quarter: 2024Q3

REPORT INFORMATION
  Report Type: Spontaneous
  Country: IN (occurrence: IN)
  Receive Date: 20240723
  Receipt Date: 20240723
  Transmission Date: 20241016
  Serious: Yes (Other)
  Sender: BRISTOL MYERS SQUIBB
  Company Number: IN-BRISTOL-MYERS SQUIBB COMPANY-2024-113632

PATIENT
  Age: 56 Year
  Sex: Male

DRUGS (1)
  1. TRIAMCINOLONE ACETONIDE [Suspect]
     Active Substance: TRIAMCINOLONE ACETONIDE
     Indication: Glaucoma
     Route: 042

REACTIONS (2)
  - Pseudoendophthalmitis [Unknown]
  - Off label use [Unknown]
